FAERS Safety Report 6650407-7 (Version None)
Quarter: 2010Q1

REPORT INFORMATION
  Report Type: 
  Country: None (occurrence: None)
  Receive Date: 20100325
  Receipt Date: 20100319
  Transmission Date: 20100710
  Serious: Yes (Hospitalization, Disabling)
  Sender: FDA-Public Use
  Company Number: US-PERRIGO-10US008052

PATIENT
  Sex: Female

DRUGS (1)
  1. SODIUM PHOSPHATE GINGER-LEMON SALINE LAXATIVE 660 MG/ML 556 [Suspect]
     Indication: BOWEL PREPARATION
     Dosage: UNK
     Route: 048
     Dates: start: 20070919, end: 20070919

REACTIONS (6)
  - ANURIA [None]
  - DEHYDRATION [None]
  - NEPHROCALCINOSIS [None]
  - PAIN [None]
  - RENAL FAILURE ACUTE [None]
  - RENAL FAILURE CHRONIC [None]
